FAERS Safety Report 4825890-X (Version None)
Quarter: 2005Q4

REPORT INFORMATION
  Report Type: 
  Country: None (occurrence: None)
  Receive Date: 20051111
  Receipt Date: 20051031
  Transmission Date: 20060501
  Serious: Yes (Other)
  Sender: FDA-Public Use
  Company Number: DE-JNJFOC-20051100989

PATIENT
  Sex: Male

DRUGS (1)
  1. CONCERTA [Suspect]
     Indication: DRUG USE FOR UNKNOWN INDICATION
     Dosage: 8 X 18MG CONCERTA TABLETS = 144MG TOTAL DOSE
     Route: 048

REACTIONS (2)
  - PARALYSIS [None]
  - SUICIDE ATTEMPT [None]
